FAERS Safety Report 23764450 (Version 1)
Quarter: 2024Q2

REPORT INFORMATION
  Report Type: Spontaneous
  Country: CA (occurrence: CA)
  Receive Date: 20240420
  Receipt Date: 20240420
  Transmission Date: 20240716
  Serious: Yes (Other)
  Sender: FDA-Public Use
  Company Number: CA-TEVA-VS-3185079

PATIENT
  Age: 38 Year
  Sex: Female

DRUGS (7)
  1. METHOTREXATE [Suspect]
     Active Substance: METHOTREXATE
     Indication: Product used for unknown indication
     Route: 058
  2. AZATHIOPRINE [Suspect]
     Active Substance: AZATHIOPRINE
     Indication: Product used for unknown indication
     Route: 048
  3. INFLECTRA [Suspect]
     Active Substance: INFLIXIMAB-DYYB
     Indication: Sarcoidosis
     Dosage: DOSE FROM: POWDER FOR SOLUTION INTRAVENOUS
     Route: 042
  4. INFLECTRA [Suspect]
     Active Substance: INFLIXIMAB-DYYB
     Indication: Sarcoidosis
     Route: 042
  5. INFLECTRA [Suspect]
     Active Substance: INFLIXIMAB-DYYB
     Indication: Sarcoidosis
     Route: 042
  6. INFLECTRA [Suspect]
     Active Substance: INFLIXIMAB-DYYB
     Indication: Sarcoidosis
     Route: 042
  7. HUMIRA [Suspect]
     Active Substance: ADALIMUMAB
     Indication: Product used for unknown indication
     Dosage: DOSE FORM; SOLUTION SUBCUTANEOUS, DURATION: 365 WITH NO UNITS
     Route: 058

REACTIONS (5)
  - Ocular sarcoidosis [Recovering/Resolving]
  - Drug ineffective [Recovering/Resolving]
  - Iritis [Recovering/Resolving]
  - Drug ineffective [Recovering/Resolving]
  - Gastrointestinal disorder [Recovering/Resolving]
